FAERS Safety Report 7823095 (Version 4)
Quarter: 2013Q3

REPORT INFORMATION
  Report Type: Spontaneous
  Country: US (occurrence: US)
  Receive Date: 20110223
  Receipt Date: 20130924
  Transmission Date: 20140515
  Serious: Yes (Hospitalization, Other)
  Sender: FDA-Public Use
  Company Number: US-ROCHE-734186

PATIENT
  Sex: Female
  Weight: 65.8 kg

DRUGS (1)
  1. ACCUTANE [Suspect]
     Indication: ACNE
     Route: 065
     Dates: start: 198806, end: 19890601

REACTIONS (8)
  - Colitis ulcerative [Unknown]
  - Mesenteric vein thrombosis [Unknown]
  - Gastrointestinal injury [Unknown]
  - Depression [Unknown]
  - Inflammatory bowel disease [Unknown]
  - Intestinal obstruction [Unknown]
  - Pulmonary embolism [Unknown]
  - Irritable bowel syndrome [Unknown]
